FAERS Safety Report 7033655-6 (Version None)
Quarter: 2010Q4

REPORT INFORMATION
  Report Type: 
  Country: None (occurrence: None)
  Receive Date: 20101005
  Receipt Date: 20100920
  Transmission Date: 20110411
  Serious: Yes (Other)
  Sender: FDA-Public Use
  Company Number: AUR-APL-2010-02353

PATIENT
  Age: 32 Year
  Sex: Male

DRUGS (5)
  1. SERTRALINE [Suspect]
     Indication: AGORAPHOBIA
     Dosage: 3.125MG, DAILY, ORAL
     Route: 048
  2. SERTRALINE [Suspect]
     Indication: PANIC DISORDER
     Dosage: 3.125MG, DAILY, ORAL
     Route: 048
  3. SERTRALINE [Suspect]
     Indication: AGORAPHOBIA
     Dosage: 9.375MG, DAILY, ORAL DOSE DECREASED
     Route: 048
  4. SERTRALINE [Suspect]
     Indication: PANIC DISORDER
     Dosage: 9.375MG, DAILY, ORAL DOSE DECREASED
     Route: 048
  5. DIAZEPAM [Concomitant]

REACTIONS (6)
  - ABNORMAL DREAMS [None]
  - EJACULATION DELAYED [None]
  - ILL-DEFINED DISORDER [None]
  - NIGHT SWEATS [None]
  - PANIC ATTACK [None]
  - PHOBIC AVOIDANCE [None]
